FAERS Safety Report 6968396-4 (Version None)
Quarter: 2010Q3

REPORT INFORMATION
  Report Type: 
  Country: None (occurrence: None)
  Receive Date: 20100907
  Receipt Date: 20100830
  Transmission Date: 20110219
  Serious: Yes (Hospitalization)
  Sender: FDA-Public Use
  Company Number: IN-ROCHE-724288

PATIENT
  Sex: Male

DRUGS (8)
  1. MYCOPHENOLATE MOFETIL [Suspect]
     Route: 065
     Dates: start: 20070226
  2. BELATACEPT [Suspect]
     Indication: IMMUNOSUPPRESSION
     Route: 042
     Dates: start: 20070228
  3. WYSOLONE [Concomitant]
     Dates: start: 20070522
  4. NIFEDIPINE [Concomitant]
     Dosage: DRUG REPORTED AS DEPIN
     Dates: start: 20070329
  5. ATENOLOL [Concomitant]
     Dates: start: 20040313
  6. MIXTARD HUMAN 70/30 [Concomitant]
     Dates: start: 20100708
  7. PIOGLITAZONE HCL [Concomitant]
     Dates: start: 20090515
  8. METFORMIN [Concomitant]
     Dates: start: 20090515

REACTIONS (1)
  - SPLENIC CYST [None]
